FAERS Safety Report 17490879 (Version 1)
Quarter: 2020Q1

REPORT INFORMATION
  Report Type: Spontaneous
  Country: US (occurrence: US)
  Receive Date: 20200303
  Receipt Date: 20200303
  Transmission Date: 20200409
  Serious: Yes (Other)
  Sender: FDA-Public Use
  Company Number: NVSC2020US059751

PATIENT
  Age: 48 Year
  Sex: Male

DRUGS (14)
  1. BIVALIRUDIN. [Suspect]
     Active Substance: BIVALIRUDIN
     Dosage: 0.49 MG/KG, QH
     Route: 065
  2. BIVALIRUDIN. [Suspect]
     Active Substance: BIVALIRUDIN
     Dosage: 0.18 MG/KG, QH
     Route: 065
  3. BIVALIRUDIN. [Suspect]
     Active Substance: BIVALIRUDIN
     Indication: ANTICOAGULANT THERAPY
     Dosage: 0.15 MG/KG, QH
     Route: 065
  4. BIVALIRUDIN. [Suspect]
     Active Substance: BIVALIRUDIN
     Dosage: 0.12 MG/KG, QH
     Route: 065
  5. ARGATROBAN. [Suspect]
     Active Substance: ARGATROBAN
     Indication: ANTICOAGULANT THERAPY
     Dosage: 1.25 MICROGRAM/KILOGRAM
     Route: 065
  6. ARGATROBAN. [Suspect]
     Active Substance: ARGATROBAN
     Dosage: 1.76  MICROGRAM/KILOGRAM, 1/1 MINUTE
     Route: 065
  7. BIVALIRUDIN. [Suspect]
     Active Substance: BIVALIRUDIN
     Dosage: 0.28 MG/KG, QH
     Route: 065
  8. BIVALIRUDIN. [Suspect]
     Active Substance: BIVALIRUDIN
     Dosage: 0.41 MG/KG, QH
     Route: 065
  9. BIVALIRUDIN. [Suspect]
     Active Substance: BIVALIRUDIN
     Dosage: 0.54 MG/KG, QH
     Route: 041
  10. ARGATROBAN. [Suspect]
     Active Substance: ARGATROBAN
     Dosage: 2.2  MICROGRAM/KILOGRAM, 1/1 MINUTE
     Route: 065
  11. BIVALIRUDIN. [Suspect]
     Active Substance: BIVALIRUDIN
     Dosage: 0.54 MG/KG, QH
     Route: 065
  12. BIVALIRUDIN. [Suspect]
     Active Substance: BIVALIRUDIN
     Dosage: 0.234 MG/KG, QH
     Route: 065
  13. BIVALIRUDIN. [Suspect]
     Active Substance: BIVALIRUDIN
     Dosage: 0.34 MG/KG, QH
     Route: 065
  14. OSELTAMIVIR [Concomitant]
     Active Substance: OSELTAMIVIR
     Indication: ANTIVIRAL TREATMENT
     Dosage: UNK
     Route: 065

REACTIONS (3)
  - Jugular vein thrombosis [Unknown]
  - Catheter site thrombosis [Unknown]
  - Venous thrombosis limb [Unknown]
